FAERS Safety Report 8155527-6 (Version None)
Quarter: 2012Q1

REPORT INFORMATION
  Report Type: 
  Country: None (occurrence: None)
  Receive Date: 20120222
  Receipt Date: 20120217
  Transmission Date: 20120608
  Serious: Yes (Hospitalization, Other)
  Sender: FDA-Public Use
  Company Number: US-BAYER-201020298NA

PATIENT
  Age: 31 Year
  Sex: Female
  Weight: 67 kg

DRUGS (10)
  1. PERCOCET-5 [Concomitant]
  2. YAZ [Suspect]
     Indication: ORAL CONTRACEPTION
     Dosage: UNK UNK, UNK
     Route: 048
     Dates: start: 20070424, end: 20080815
  3. ACETAMINOPHEN [Concomitant]
  4. ZITHROMAX [Concomitant]
  5. ASPIRIN [Concomitant]
     Dosage: 325 MG (DAILY DOSE), ,
  6. NAPROXEN (ALEVE) [Concomitant]
  7. ZITHROMAX [Concomitant]
  8. LOVENOX [Concomitant]
  9. MAGNESIUM [Concomitant]
     Route: 048
  10. OXYCET [Concomitant]

REACTIONS (9)
  - CHEST PAIN [None]
  - PULMONARY INFARCTION [None]
  - DEEP VEIN THROMBOSIS [None]
  - ARRHYTHMIA [None]
  - PALPITATIONS [None]
  - PAIN IN EXTREMITY [None]
  - EMOTIONAL DISTRESS [None]
  - PULMONARY EMBOLISM [None]
  - ANGINA PECTORIS [None]
